FAERS Safety Report 11167517 (Version 2)
Quarter: 2015Q3

REPORT INFORMATION
  Report Type: Spontaneous
  Country: US (occurrence: US)
  Receive Date: 20150605
  Receipt Date: 20150702
  Transmission Date: 20151125
  Serious: Yes (Hospitalization, Other)
  Sender: FDA-Public Use
  Company Number: US-PFIZER INC-2015183702

PATIENT
  Age: 70 Year
  Sex: Female

DRUGS (1)
  1. IBRANCE [Suspect]
     Active Substance: PALBOCICLIB
     Indication: BREAST CANCER
     Dosage: 125 MG, 1X/DAY, FOR 21 DAYS
     Route: 048
     Dates: start: 20150421, end: 20150517

REACTIONS (11)
  - Febrile neutropenia [Recovered/Resolved]
  - Hypovolaemia [Unknown]
  - Chronic obstructive pulmonary disease [Unknown]
  - Hypophagia [Unknown]
  - Septic shock [Recovered/Resolved]
  - Pancytopenia [Recovered/Resolved]
  - Acute kidney injury [Unknown]
  - Hyponatraemia [Recovered/Resolved]
  - Constipation [Unknown]
  - Haemoglobin decreased [Unknown]
  - Hypertension [Unknown]
